FAERS Safety Report 12384384 (Version 2)
Quarter: 2016Q3

REPORT INFORMATION
  Report Type: Spontaneous
  Country: US (occurrence: US)
  Receive Date: 20160519
  Receipt Date: 20160830
  Transmission Date: 20161109
  Serious: No
  Sender: FDA-Public Use
  Company Number: US-009507513-1605USA003552

PATIENT
  Sex: Female

DRUGS (1)
  1. NEXPLANON [Suspect]
     Active Substance: ETONOGESTREL
     Dosage: 1 ROD EVERY THREE MONTH
     Route: 030

REACTIONS (3)
  - Menstruation irregular [Recovering/Resolving]
  - Device deployment issue [Recovered/Resolved]
  - Device breakage [Recovered/Resolved]
